FAERS Safety Report 5094275-6 (Version None)
Quarter: 2006Q3

REPORT INFORMATION
  Report Type: 
  Country: None (occurrence: None)
  Receive Date: 20060831
  Receipt Date: 20060830
  Transmission Date: 20061208
  Serious: Yes (Life-Threatening)
  Sender: FDA-Public Use
  Company Number: FR-GLAXOSMITHKLINE-B0436337A

PATIENT
  Age: 59 Year
  Sex: Male

DRUGS (7)
  1. AUGMENTIN '125' [Suspect]
     Dosage: 2G SINGLE DOSE
     Route: 042
     Dates: start: 20060505, end: 20060505
  2. CELOCURINE [Concomitant]
     Dosage: 1UNIT SINGLE DOSE
     Route: 042
     Dates: start: 20060505, end: 20060505
  3. ESMERON [Concomitant]
     Dosage: 1UNIT SINGLE DOSE
     Route: 042
     Dates: start: 20060505, end: 20060505
  4. DIPRIVAN [Concomitant]
     Dosage: 1UNIT SINGLE DOSE
     Route: 042
     Dates: start: 20060505, end: 20060505
  5. SUFENTANIL CITRATE [Concomitant]
     Dosage: 1UNIT SINGLE DOSE
     Route: 042
     Dates: start: 20060505, end: 20060505
  6. GLUCOVANCE [Concomitant]
     Route: 065
  7. INIPOMP [Concomitant]
     Route: 065

REACTIONS (5)
  - ANAPHYLACTIC SHOCK [None]
  - BLOOD PRESSURE DECREASED [None]
  - BRADYCARDIA [None]
  - BRONCHOSPASM [None]
  - GENERALISED ERYTHEMA [None]
